FAERS Safety Report 8323746-1 (Version None)
Quarter: 2012Q2

REPORT INFORMATION
  Report Type: 
  Country: None (occurrence: None)
  Receive Date: 20120501
  Receipt Date: 20120425
  Transmission Date: 20120825
  Serious: Yes (Hospitalization, Other)
  Sender: FDA-Public Use
  Company Number: ES-AMGEN-ESPSP2012026579

PATIENT
  Age: 31 Year
  Sex: Female
  Weight: 60 kg

DRUGS (3)
  1. NPLATE [Suspect]
     Indication: IDIOPATHIC THROMBOCYTOPENIC PURPURA
     Dosage: UNK UNK, QWK
     Dates: start: 20110201
  2. CORTICOSTEROIDS [Concomitant]
  3. IMMUNE GLOBULIN NOS [Concomitant]

REACTIONS (1)
  - PULMONARY EMBOLISM [None]
